FAERS Safety Report 4474533-6 (Version None)
Quarter: 2004Q4

REPORT INFORMATION
  Report Type: 
  Country: None (occurrence: None)
  Receive Date: 20041014
  Receipt Date: 20041011
  Transmission Date: 20050328
  Serious: Yes (Death, Other)
  Sender: FDA-Public Use
  Company Number: PHEH2004US10997

PATIENT
  Age: 49 Year
  Sex: Male

DRUGS (2)
  1. CLOZARIL [Suspect]
     Dosage: 200 MG, QHS
     Route: 048
     Dates: end: 19990801
  2. CLOZAPINE [Suspect]
     Dosage: 200 MG, QHS
     Route: 048
     Dates: start: 19990801

REACTIONS (3)
  - COLON CANCER [None]
  - COLON CANCER METASTATIC [None]
  - PHARMACEUTICAL PRODUCT COMPLAINT [None]
